FAERS Safety Report 13016916 (Version 1)
Quarter: 2016Q4

REPORT INFORMATION
  Report Type: Spontaneous
  Country: CN (occurrence: CN)
  Receive Date: 20161212
  Receipt Date: 20161212
  Transmission Date: 20170207
  Serious: Yes (Other)
  Sender: FDA-Public Use
  Company Number: PHHY2016CN167055

PATIENT

DRUGS (2)
  1. SEBIVO [Suspect]
     Active Substance: TELBIVUDINE
     Indication: FOETAL EXPOSURE DURING PREGNANCY
     Dosage: MATERNAL DOSE: 600 MG/DAY
     Route: 064
  2. SEBIVO [Suspect]
     Active Substance: TELBIVUDINE
     Indication: PROPHYLAXIS

REACTIONS (3)
  - Hepatitis B surface antigen positive [Recovered/Resolved]
  - Foetal exposure during pregnancy [Unknown]
  - Hepatitis B e antigen positive [Recovered/Resolved]
